FAERS Safety Report 8573620-0 (Version None)
Quarter: 2012Q3

REPORT INFORMATION
  Report Type: 
  Country: None (occurrence: None)
  Receive Date: 20120806
  Receipt Date: 20120801
  Transmission Date: 20120928
  Serious: Yes (Other)
  Sender: FDA-Public Use
  Company Number: DE-GLAXOSMITHKLINE-D0076598A

PATIENT
  Sex: Female
  Weight: 50 kg

DRUGS (2)
  1. NARATRIPTAN [Suspect]
     Indication: MIGRAINE
     Route: 065
  2. PANTOPRAZOLE [Concomitant]
     Route: 065

REACTIONS (6)
  - MYOCARDIAL INFARCTION [None]
  - RESTLESSNESS [None]
  - SENSATION OF HEAVINESS [None]
  - TONGUE DISORDER [None]
  - PARAESTHESIA [None]
  - DRUG INEFFECTIVE [None]
